FAERS Safety Report 13706923 (Version 2)
Quarter: 2017Q3

REPORT INFORMATION
  Report Type: Spontaneous
  Country: JP (occurrence: JP)
  Receive Date: 20170630
  Receipt Date: 20170811
  Transmission Date: 20171127
  Serious: Yes (Other)
  Sender: FDA-Public Use
  Company Number: JP-ELI_LILLY_AND_COMPANY-JP201706012243

PATIENT
  Age: 62 Year
  Sex: Male

DRUGS (2)
  1. ERBITUX [Suspect]
     Active Substance: CETUXIMAB
     Indication: COLORECTAL CANCER
     Dosage: UNK, UNKNOWN
     Route: 041
  2. CISPLATIN. [Suspect]
     Active Substance: CISPLATIN
     Indication: COLORECTAL CANCER
     Dosage: UNK, UNKNOWN
     Route: 065

REACTIONS (1)
  - Pneumothorax [Unknown]
